FAERS Safety Report 16446311 (Version 1)
Quarter: 2019Q2

REPORT INFORMATION
  Report Type: Spontaneous
  Country: US (occurrence: US)
  Receive Date: 20190618
  Receipt Date: 20190618
  Transmission Date: 20190711
  Serious: Yes (Other)
  Sender: FDA-Public Use
  Company Number: US-SAOL THERAPEUTICS-2019SAO00231

PATIENT
  Sex: Male
  Weight: 49 kg

DRUGS (2)
  1. LIORESAL [Suspect]
     Active Substance: BACLOFEN
     Dosage: 400 ?G, \DAY
     Route: 037
     Dates: end: 20190610
  2. LIORESAL [Suspect]
     Active Substance: BACLOFEN
     Dosage: 125 ?G, \DAY
     Route: 037
     Dates: start: 20190610

REACTIONS (3)
  - Spinal fusion surgery [Recovered/Resolved]
  - Device kink [Recovered/Resolved]
  - Therapy non-responder [Recovered/Resolved]
